FAERS Safety Report 10884694 (Version 1)
Quarter: 2015Q1

REPORT INFORMATION
  Report Type: Spontaneous
  Country: PT (occurrence: PT)
  Receive Date: 20150304
  Receipt Date: 20150304
  Transmission Date: 20150721
  Serious: Yes (Hospitalization, Other)
  Sender: FDA-Public Use
  Company Number: PT-009507513-1411PRT010625

PATIENT
  Age: 31 Year
  Sex: Female
  Weight: 60 kg

DRUGS (4)
  1. DECAPEPTYL [Suspect]
     Active Substance: TRIPTORELIN ACETATE
     Dosage: AT 9TH DAY; 0.1 (UNITS NOT PROVIDED)
  2. ELONVA [Suspect]
     Active Substance: CORIFOLLITROPIN ALFA
     Indication: OVULATION INDUCTION
     Dosage: UNK
  3. FOLLITROPIN BETA [Suspect]
     Active Substance: FOLLITROPIN
     Dosage: AT 8TH DAY; 150 (UNITS NOT PROVIDED)
  4. PREGNYL [Suspect]
     Active Substance: CHORIOGONADOTROPIN ALFA
     Dosage: AT 11TH AND 14TH DAY; 1500 (UNITS NOT PROVIDED).

REACTIONS (2)
  - Ovarian hyperstimulation syndrome [Unknown]
  - Abortion induced [Unknown]
